FAERS Safety Report 25417410 (Version 1)
Quarter: 2025Q2

REPORT INFORMATION
  Report Type: Spontaneous
  Country: US (occurrence: None)
  Receive Date: 20250608
  Receipt Date: 20250608
  Transmission Date: 20250717
  Serious: Yes (Death, Hospitalization)
  Sender: FDA-CTU
  Company Number: None

PATIENT
  Age: 74 Year
  Sex: Female
  Weight: 76.5 kg

DRUGS (1)
  1. ENTRESTO [Suspect]
     Active Substance: SACUBITRIL\VALSARTAN
     Indication: Atrial fibrillation
     Dosage: OTHER QUANTITY : 180 TABLET(S);?FREQUENCY : TWICE A DAY;?
     Route: 048
     Dates: start: 20250420, end: 20250608

REACTIONS (4)
  - Presyncope [None]
  - Fall [None]
  - Spinal fracture [None]
  - Neurogenic bladder [None]

NARRATIVE: CASE EVENT DATE: 20250604
